FAERS Safety Report 6645431-4 (Version None)
Quarter: 2010Q1

REPORT INFORMATION
  Report Type: 
  Country: None (occurrence: None)
  Receive Date: 20100322
  Receipt Date: 20100311
  Transmission Date: 20100710
  Serious: Yes (Other)
  Sender: FDA-Public Use
  Company Number: US-ASTRAZENECA-2010SE07255

PATIENT
  Age: 68 Year
  Sex: Male
  Weight: 64.5 kg

DRUGS (2)
  1. SYMBICORT [Suspect]
     Indication: CHRONIC OBSTRUCTIVE PULMONARY DISEASE
     Dosage: 80/4.5 UG TWO PUFFS BID
     Route: 055
     Dates: start: 20100211
  2. SIMVASTATIN [Concomitant]

REACTIONS (1)
  - CHEST PAIN [None]
